FAERS Safety Report 15504849 (Version 1)
Quarter: 2018Q4

REPORT INFORMATION
  Report Type: Spontaneous
  Country: US (occurrence: US)
  Receive Date: 20181009
  Receipt Date: 20181009
  Transmission Date: 20190205
  Serious: Yes (Hospitalization)
  Sender: FDA-Public Use
  Company Number: None

PATIENT
  Age: 74 Year
  Sex: Male
  Weight: 99 kg

DRUGS (2)
  1. HIGH BLOOD PRESSURE MEDICINE [Concomitant]
     Active Substance: UNSPECIFIED INGREDIENT
  2. MAGNEVIST [Suspect]
     Active Substance: GADOPENTETATE DIMEGLUMINE
     Indication: NUCLEAR MAGNETIC RESONANCE IMAGING
     Route: 042
     Dates: start: 20180903, end: 20181003

REACTIONS (10)
  - Feeling abnormal [None]
  - Renal disorder [None]
  - Contrast media reaction [None]
  - Palpitations [None]
  - Confusional state [None]
  - Malaise [None]
  - Blood pressure increased [None]
  - Dizziness [None]
  - Nausea [None]
  - Thirst [None]

NARRATIVE: CASE EVENT DATE: 20180903
